FAERS Safety Report 18915823 (Version 1)
Quarter: 2021Q1

REPORT INFORMATION
  Report Type: Spontaneous
  Country: IT (occurrence: IT)
  Receive Date: 20210219
  Receipt Date: 20210219
  Transmission Date: 20210420
  Serious: Yes (Other)
  Sender: FDA-Public Use
  Company Number: IT-GLAXOSMITHKLINE-B0598964A

PATIENT
  Age: 47 Year
  Sex: Male

DRUGS (1)
  1. AUGMENTIN [Suspect]
     Active Substance: AMOXICILLIN\CLAVULANATE POTASSIUM
     Indication: UPPER RESPIRATORY TRACT INFECTION
     Route: 065

REACTIONS (6)
  - Blood triglycerides increased [Recovered/Resolved]
  - Dermatitis bullous [Recovered/Resolved]
  - Blood lactate dehydrogenase increased [Recovered/Resolved]
  - Linear IgA disease [Recovered/Resolved]
  - Blister [Recovered/Resolved]
  - Gamma-glutamyltransferase increased [Recovered/Resolved]
